FAERS Safety Report 16403964 (Version 1)
Quarter: 2019Q2

REPORT INFORMATION
  Report Type: Spontaneous
  Country: TN (occurrence: TN)
  Receive Date: 20190607
  Receipt Date: 20190607
  Transmission Date: 20190711
  Serious: Yes (Death, Other)
  Sender: FDA-Public Use
  Company Number: PHHY2019TN128793

PATIENT
  Age: 39 Year
  Sex: Male

DRUGS (4)
  1. CYTARABINE. [Concomitant]
     Active Substance: CYTARABINE
     Indication: ACUTE MYELOID LEUKAEMIA
     Dosage: 200 MG/M2, QD DAYS 1?7
     Route: 065
  2. IDARUBICIN [Concomitant]
     Active Substance: IDARUBICIN
     Indication: ACUTE MYELOID LEUKAEMIA
     Dosage: 12 MG/M2, QD DAYS 1?3
     Route: 065
  3. PIPERACILLIN AND TAZOBACTAM [Suspect]
     Active Substance: PIPERACILLIN SODIUM\TAZOBACTAM SODIUM
     Indication: EVIDENCE BASED TREATMENT
     Route: 065
  4. COLISTIN [Suspect]
     Active Substance: COLISTIN
     Indication: EVIDENCE BASED TREATMENT
     Route: 065

REACTIONS (4)
  - Respiratory failure [Unknown]
  - Septic shock [Fatal]
  - Geotrichum infection [Unknown]
  - Diarrhoea [Unknown]
